FAERS Safety Report 9383200 (Version 3)
Quarter: 2013Q3

REPORT INFORMATION
  Report Type: Spontaneous
  Country: BR (occurrence: BR)
  Receive Date: 20130704
  Receipt Date: 20130830
  Transmission Date: 20140515
  Serious: Yes (Death, Other)
  Sender: FDA-Public Use
  Company Number: BR-JNJFOC-20130618508

PATIENT
  Age: 78 Year
  Sex: Female

DRUGS (6)
  1. XARELTO [Suspect]
     Indication: ATRIAL FIBRILLATION
     Route: 048
     Dates: start: 2012, end: 20130617
  2. XARELTO [Suspect]
     Indication: CEREBROVASCULAR ACCIDENT PROPHYLAXIS
     Route: 048
     Dates: start: 2012, end: 20130617
  3. OLCADIL [Concomitant]
     Indication: PRODUCT USED FOR UNKNOWN INDICATION
     Route: 048
  4. LASIX [Concomitant]
     Indication: PRODUCT USED FOR UNKNOWN INDICATION
     Route: 048
  5. CONCOR [Concomitant]
     Indication: PRODUCT USED FOR UNKNOWN INDICATION
     Route: 048
  6. DIGOXIN [Concomitant]
     Indication: ATRIAL FIBRILLATION
     Route: 048

REACTIONS (13)
  - Pneumonitis chemical [Fatal]
  - Urinary tract infection bacterial [Unknown]
  - Mitral valve stenosis [Unknown]
  - Acute respiratory failure [Unknown]
  - Acute respiratory distress syndrome [Unknown]
  - Pulmonary haemorrhage [Unknown]
  - Pulmonary fibrosis [Unknown]
  - Abdominal pain [Unknown]
  - Leukocytosis [Unknown]
  - Aortic valve calcification [Unknown]
  - Aortic valve stenosis [Unknown]
  - Mitral valve calcification [Unknown]
  - Dyspnoea [Unknown]
